FAERS Safety Report 8796875 (Version 4)
Quarter: 2013Q1

REPORT INFORMATION
  Report Type: Spontaneous
  Country: US (occurrence: US)
  Receive Date: 20120917
  Receipt Date: 20130108
  Transmission Date: 20140127
  Serious: Yes (Hospitalization, Other)
  Sender: FDA-Public Use
  Company Number: US-009507513-1012USA03428

PATIENT
  Sex: 0

DRUGS (10)
  1. FOSAMAX [Suspect]
     Indication: OSTEOPOROSIS
     Dosage: 70 MG, UNK
     Route: 048
     Dates: start: 200405, end: 200802
  2. FOSAMAX [Suspect]
     Indication: OSTEOPENIA
  3. FOSAMAX [Suspect]
     Indication: OSTEOPOROSIS
     Dosage: 70 MG, QW
     Route: 048
     Dates: start: 20080202, end: 201003
  4. FOSAMAX [Suspect]
     Indication: OSTEOPENIA
  5. ALENDRONATE SODIUM [Suspect]
     Indication: OSTEOPOROSIS
     Dosage: 70 MG, UNK
     Route: 048
     Dates: start: 20051011
  6. VITAMINS (UNSPECIFIED) [Concomitant]
     Dosage: UNK DF, UNK
     Dates: start: 2000
  7. VITAMIN D (UNSPECIFIED) [Concomitant]
     Dosage: 1000 MG, QD
     Dates: start: 2000
  8. CALCIUM (UNSPECIFIED) [Concomitant]
     Dosage: 600-1500 MG, QD
     Dates: start: 2000
  9. OCUVITE [Concomitant]
  10. VITAMIN E [Concomitant]

REACTIONS (18)
  - Femur fracture [Unknown]
  - Internal fixation of fracture [Unknown]
  - Femur fracture [Unknown]
  - Basal cell carcinoma [Unknown]
  - Carpal tunnel decompression [Unknown]
  - Cataract operation [Unknown]
  - Cataract operation [Unknown]
  - Fall [Unknown]
  - Gait disturbance [Not Recovered/Not Resolved]
  - Foot fracture [Unknown]
  - Foot fracture [Unknown]
  - Macular degeneration [Not Recovered/Not Resolved]
  - Bone density decreased [Unknown]
  - Vitamin D decreased [Unknown]
  - Hypertension [Unknown]
  - Blood cholesterol increased [Unknown]
  - Synovial cyst [Unknown]
  - Diarrhoea [Recovering/Resolving]
